FAERS Safety Report 13891062 (Version 2)
Quarter: 2017Q4

REPORT INFORMATION
  Report Type: Report from Study
  Country: MX (occurrence: MX)
  Receive Date: 20170822
  Receipt Date: 20171004
  Transmission Date: 20180320
  Serious: Yes (Other)
  Sender: FDA-Public Use
  Company Number: MX-BAYER-2017-149363

PATIENT
  Age: 67 Year
  Sex: Male

DRUGS (4)
  1. INSULIN [Concomitant]
     Active Substance: INSULIN NOS
     Indication: DIABETES MELLITUS
     Dosage: UNK
  2. NEXAVAR [Suspect]
     Active Substance: SORAFENIB
     Indication: HEPATOCELLULAR CARCINOMA
     Dosage: 400 MG, BID
     Route: 048
     Dates: start: 20170706
  3. LOSARTAN. [Concomitant]
     Active Substance: LOSARTAN
  4. ENALAPRIL [Concomitant]
     Active Substance: ENALAPRIL
     Indication: HYPERTENSION
     Dosage: 10 MG, BID
     Route: 048

REACTIONS (19)
  - Cataract [Not Recovered/Not Resolved]
  - Faeces discoloured [Unknown]
  - Diarrhoea [Unknown]
  - Urine analysis abnormal [Unknown]
  - Flatulence [Unknown]
  - Skin papilloma [None]
  - Muscle spasms [None]
  - Burning sensation [Recovering/Resolving]
  - Pruritus generalised [Not Recovered/Not Resolved]
  - Erythema [Recovered/Resolved]
  - Diarrhoea [Unknown]
  - Diarrhoea [None]
  - Chromaturia [Unknown]
  - Abdominal pain [Recovering/Resolving]
  - Hypersomnia [Unknown]
  - Faeces discoloured [Unknown]
  - Hypertension [Unknown]
  - Skin disorder [Recovered/Resolved]
  - Temperature intolerance [None]

NARRATIVE: CASE EVENT DATE: 20170706
